FAERS Safety Report 15288840 (Version 1)
Quarter: 2018Q3

REPORT INFORMATION
  Report Type: Spontaneous
  Country: FR (occurrence: FR)
  Receive Date: 20180817
  Receipt Date: 20180817
  Transmission Date: 20181010
  Serious: Yes (Hospitalization)
  Sender: FDA-Public Use
  Company Number: PHHY2018FR073174

PATIENT
  Age: 71 Year
  Sex: Male

DRUGS (8)
  1. ZOLPIDEM [Suspect]
     Active Substance: ZOLPIDEM\ZOLPIDEM TARTRATE
     Indication: POISONING DELIBERATE
     Dosage: 1 DF, TOTAL
     Route: 048
     Dates: start: 20180606
  2. ENALAPRIL [Suspect]
     Active Substance: ENALAPRIL
     Indication: POISONING DELIBERATE
     Dosage: 2 DF, TOTAL
     Route: 048
     Dates: start: 20180606
  3. VENTOLINE [Concomitant]
     Active Substance: ALBUTEROL
     Indication: ASTHMA
     Dosage: UNK
     Route: 048
  4. SERETIDE [Concomitant]
     Active Substance: FLUTICASONE PROPIONATE\SALMETEROL XINAFOATE
     Indication: ASTHMA
     Dosage: UNK
     Route: 048
  5. METFORMINE HCL [Suspect]
     Active Substance: METFORMIN HYDROCHLORIDE
     Indication: POISONING DELIBERATE
     Dosage: 2 DF, TOTAL
     Route: 048
     Dates: start: 20180606
  6. ZOPICLONE [Suspect]
     Active Substance: ZOPICLONE
     Indication: POISONING DELIBERATE
     Dosage: 2 DF, TOTAL
     Route: 048
     Dates: start: 20180606
  7. RAMIPRIL. [Suspect]
     Active Substance: RAMIPRIL
     Indication: POISONING DELIBERATE
     Dosage: 1 DF, TOTAL
     Route: 048
     Dates: start: 20180606
  8. NATISPRAY [Concomitant]
     Active Substance: NITROGLYCERIN
     Indication: ANGINA PECTORIS
     Dosage: UNK
     Route: 048

REACTIONS (2)
  - Dysarthria [Recovered/Resolved]
  - Somnolence [Recovered/Resolved]

NARRATIVE: CASE EVENT DATE: 20180606
